FAERS Safety Report 19650712 (Version 1)
Quarter: 2021Q3

REPORT INFORMATION
  Report Type: Spontaneous
  Country: US (occurrence: US)
  Receive Date: 20210802
  Receipt Date: 20210802
  Transmission Date: 20211014
  Serious: Yes (Hospitalization)
  Sender: FDA-Public Use
  Company Number: None

PATIENT
  Age: 27 Month
  Sex: Female

DRUGS (3)
  1. AMBRISENTAN TAB 5MG [Suspect]
     Active Substance: AMBRISENTAN
     Route: 048
     Dates: start: 20210721
  2. REMODULIN [Suspect]
     Active Substance: TREPROSTINIL
  3. TADALAFIL. [Suspect]
     Active Substance: TADALAFIL

REACTIONS (2)
  - Syncope [None]
  - Cardiac arrest [None]

NARRATIVE: CASE EVENT DATE: 20210516
